FAERS Safety Report 4809123-6 (Version None)
Quarter: 2005Q4

REPORT INFORMATION
  Report Type: 
  Country: None (occurrence: None)
  Receive Date: 20051025
  Receipt Date: 20050601
  Transmission Date: 20060501
  Serious: Yes (Other)
  Sender: FDA-Public Use
  Company Number: PHEH2005US06214

PATIENT
  Age: 56 Year
  Sex: Female
  Weight: 54 kg

DRUGS (4)
  1. DIOVAN [Suspect]
     Indication: HYPERTENSION
     Dosage: 160 MG, QD
     Route: 048
     Dates: start: 20040823
  2. COUMADIN [Concomitant]
  3. LISINOPRIL [Concomitant]
     Dosage: 20 MG, QD
     Route: 048
  4. PREMARIN [Concomitant]
     Dosage: 0.9 MG, QD
     Route: 048

REACTIONS (3)
  - BREAST CANCER FEMALE [None]
  - COUGH [None]
  - DRY THROAT [None]
